FAERS Safety Report 21892270 (Version 2)
Quarter: 2023Q2

REPORT INFORMATION
  Report Type: Spontaneous
  Country: US (occurrence: US)
  Receive Date: 20230120
  Receipt Date: 20230427
  Transmission Date: 20230721
  Serious: Yes (Other)
  Sender: FDA-Public Use
  Company Number: US-ENDO PHARMACEUTICALS INC-2022-004787

PATIENT
  Sex: Male

DRUGS (2)
  1. PERCOCET [Suspect]
     Active Substance: ACETAMINOPHEN\OXYCODONE HYDROCHLORIDE
     Indication: Back disorder
     Dosage: UNK UNKNOWN, UNKNOWN
     Route: 065
  2. PERCODAN [Suspect]
     Active Substance: ASPIRIN\OXYCODONE HYDROCHLORIDE
     Indication: Back disorder
     Dosage: UNK UNKNOWN, UNKNOWN
     Route: 065

REACTIONS (1)
  - Drug dependence [Unknown]

NARRATIVE: CASE EVENT DATE: 19860101
